FAERS Safety Report 5174326-0 (Version None)
Quarter: 2006Q4

REPORT INFORMATION
  Report Type: 
  Country: None (occurrence: None)
  Receive Date: 20061214
  Receipt Date: 20060824
  Transmission Date: 20070319
  Serious: Yes (Hospitalization, Other)
  Sender: FDA-Public Use
  Company Number: US-ELI_LILLY_AND_COMPANY-US200609000584

PATIENT
  Age: 43 Year
  Sex: Female
  Weight: 137 kg

DRUGS (1)
  1. ZYPREXA [Suspect]
     Dosage: 200 MG, UNK
     Dates: start: 19990101, end: 20030101

REACTIONS (6)
  - BLOOD CHOLESTEROL ABNORMAL [None]
  - DIABETES MELLITUS [None]
  - HYPERTENSION [None]
  - MYOCARDIAL ISCHAEMIA [None]
  - OBESITY [None]
  - PRESCRIBED OVERDOSE [None]
